FAERS Safety Report 8057156-1 (Version None)
Quarter: 2012Q1

REPORT INFORMATION
  Report Type: 
  Country: None (occurrence: None)
  Receive Date: 20120119
  Receipt Date: 20120116
  Transmission Date: 20120608
  Serious: Yes (Hospitalization)
  Sender: FDA-Public Use
  Company Number: US-ABBOTT-11P-163-0886004-00

PATIENT
  Sex: Male

DRUGS (5)
  1. HUMIRA [Suspect]
     Indication: CROHN'S DISEASE
     Route: 058
     Dates: start: 20090101
  2. WARFARIN SODIUM [Concomitant]
     Indication: THROMBOSIS
  3. ALLOPURINOL [Concomitant]
     Indication: BLOOD URIC ACID INCREASED
  4. BYSTOLIC [Concomitant]
     Indication: BLOOD PRESSURE
  5. BUDESONIDE [Concomitant]
     Indication: CROHN'S DISEASE

REACTIONS (1)
  - ILEAL STENOSIS [None]
